FAERS Safety Report 15204755 (Version 42)
Quarter: 2025Q2

REPORT INFORMATION
  Report Type: Report from Study
  Country: US (occurrence: US)
  Receive Date: 20180726
  Receipt Date: 20250515
  Transmission Date: 20250716
  Serious: Yes (Hospitalization, Other)
  Sender: TAKEDA
  Company Number: US-SHIRE-US201826554

PATIENT
  Age: 52 Year
  Sex: Female
  Weight: 69.841 kg

DRUGS (59)
  1. HUMAN IMMUNOGLOBULIN G [Suspect]
     Active Substance: HUMAN IMMUNOGLOBULIN G
     Indication: Immunodeficiency common variable
     Dosage: 16 GRAM, 1/WEEK
     Dates: start: 20140123
  2. HUMAN IMMUNOGLOBULIN G [Suspect]
     Active Substance: HUMAN IMMUNOGLOBULIN G
     Indication: Primary immunodeficiency syndrome
     Dosage: 16 GRAM, 1/WEEK
     Dates: start: 20170315
  3. HUMAN IMMUNOGLOBULIN G [Suspect]
     Active Substance: HUMAN IMMUNOGLOBULIN G
     Dosage: 16 GRAM, 1/WEEK
     Dates: start: 20170322
  4. HUMAN IMMUNOGLOBULIN G [Suspect]
     Active Substance: HUMAN IMMUNOGLOBULIN G
     Dosage: 16 GRAM, 1/WEEK
  5. PREMARIN [Suspect]
     Active Substance: ESTROGENS, CONJUGATED
     Indication: Product used for unknown indication
  6. MOUNJARO [Suspect]
     Active Substance: TIRZEPATIDE
     Indication: Product used for unknown indication
  7. BIOTIN [Suspect]
     Active Substance: BIOTIN
     Indication: Product used for unknown indication
  8. ACETAMINOPHEN [Concomitant]
     Active Substance: ACETAMINOPHEN
  9. DIPHENHYDRAMINE [Concomitant]
     Active Substance: DIPHENHYDRAMINE
  10. LIDOCAINE [Concomitant]
     Active Substance: LIDOCAINE
  11. EPINEPHRINE [Concomitant]
     Active Substance: EPINEPHRINE
  12. HALCION [Concomitant]
     Active Substance: TRIAZOLAM
  13. PROVENTIL [Concomitant]
     Active Substance: ALBUTEROL
  14. VALTREX [Concomitant]
     Active Substance: VALACYCLOVIR HYDROCHLORIDE
  15. ALBUTEROL [Concomitant]
     Active Substance: ALBUTEROL
  16. OFLOXACIN [Concomitant]
     Active Substance: OFLOXACIN
  17. DIFLUCAN [Concomitant]
     Active Substance: FLUCONAZOLE
  18. KLONOPIN [Concomitant]
     Active Substance: CLONAZEPAM
  19. SINGULAIR [Concomitant]
     Active Substance: MONTELUKAST SODIUM
  20. DIOVAN [Concomitant]
     Active Substance: VALSARTAN
  21. FISH OIL [Concomitant]
     Active Substance: FISH OIL
  22. GABAPENTIN [Concomitant]
     Active Substance: GABAPENTIN
  23. MUPIROCIN [Concomitant]
     Active Substance: MUPIROCIN
  24. FLONASE [Concomitant]
     Active Substance: FLUTICASONE PROPIONATE
  25. DICYCLOMINE HYDROCHLORIDE [Concomitant]
     Active Substance: DICYCLOMINE HYDROCHLORIDE
  26. VITAMIN C [Concomitant]
     Active Substance: ASCORBIC ACID
  27. MELATONIN [Concomitant]
     Active Substance: MELATONIN
  28. VALERIAN [Concomitant]
     Active Substance: VALERIAN
  29. AMBIEN [Concomitant]
     Active Substance: ZOLPIDEM TARTRATE
  30. PATADAY [Concomitant]
     Active Substance: OLOPATADINE HYDROCHLORIDE
  31. ACYCLOVIR [Concomitant]
     Active Substance: ACYCLOVIR
  32. BREO ELLIPTA [Concomitant]
     Active Substance: FLUTICASONE FUROATE\VILANTEROL TRIFENATATE
  33. VITAMIN B12 [Concomitant]
     Active Substance: CYANOCOBALAMIN
  34. FAMOTIDINE [Concomitant]
     Active Substance: FAMOTIDINE
  35. PAROXETINE [Concomitant]
     Active Substance: PAROXETINE
  36. VITAMIN D3 [Concomitant]
     Active Substance: CHOLECALCIFEROL
  37. ZINC [Concomitant]
     Active Substance: ZINC
  38. LOSARTAN POTASSIUM [Concomitant]
     Active Substance: LOSARTAN POTASSIUM
  39. OMEPRAZOLE [Concomitant]
     Active Substance: OMEPRAZOLE
  40. MODERNA COVID-19 VACCINE [Concomitant]
     Active Substance: ELASOMERAN
  41. POTASSIUM [Concomitant]
     Active Substance: POTASSIUM
  42. VITAMIN B [Concomitant]
     Active Substance: VITAMIN B
  43. HERBALS [Concomitant]
     Active Substance: HERBALS
  44. PFIZER-BIONTECH COVID-19 VACCINE [Concomitant]
     Active Substance: TOZINAMERAN
  45. PAROXETINE HYDROCHLORIDE [Concomitant]
     Active Substance: PAROXETINE HYDROCHLORIDE
  46. FLUTICASONE PROPIONATE [Concomitant]
     Active Substance: FLUTICASONE PROPIONATE
  47. ALBUTEROL SULFATE [Concomitant]
     Active Substance: ALBUTEROL SULFATE
  48. METFORMIN HYDROCHLORIDE [Concomitant]
     Active Substance: METFORMIN HYDROCHLORIDE
  49. OXYCODONE HYDROCHLORIDE [Concomitant]
     Active Substance: OXYCODONE HYDROCHLORIDE
  50. PROAIR HFA [Concomitant]
     Active Substance: ALBUTEROL SULFATE
  51. CARAFATE [Concomitant]
     Active Substance: SUCRALFATE
  52. OXYGEN [Concomitant]
     Active Substance: OXYGEN
  53. ONDANSETRON [Concomitant]
     Active Substance: ONDANSETRON
  54. DIPHENHYDRAMINE HYDROCHLORIDE [Concomitant]
     Active Substance: DIPHENHYDRAMINE HYDROCHLORIDE
  55. ZINC GLUCONATE [Concomitant]
     Active Substance: ZINC GLUCONATE
  56. Zinc lozenges [Concomitant]
  57. PEPCID [Concomitant]
     Active Substance: FAMOTIDINE
  58. ATORVASTATIN [Concomitant]
     Active Substance: ATORVASTATIN
  59. METFORMIN [Concomitant]
     Active Substance: METFORMIN HYDROCHLORIDE

REACTIONS (52)
  - Pulmonary mass [Unknown]
  - Pneumonia [Recovering/Resolving]
  - Sepsis [Unknown]
  - Joint swelling [Unknown]
  - Lumbar vertebral fracture [Unknown]
  - Atypical pneumonia [Unknown]
  - Stress [Unknown]
  - Headache [Unknown]
  - Pharyngitis streptococcal [Unknown]
  - Herpes zoster [Unknown]
  - Infection [Unknown]
  - Bronchitis [Unknown]
  - Throat irritation [Unknown]
  - Inappropriate schedule of product administration [Unknown]
  - Renal disorder [Unknown]
  - Weight fluctuation [Unknown]
  - Viral infection [Unknown]
  - Weight decreased [Unknown]
  - Foot fracture [Unknown]
  - Cystitis [Recovered/Resolved]
  - Fungal infection [Recovered/Resolved]
  - Bladder pain [Recovered/Resolved]
  - Pollakiuria [Recovered/Resolved]
  - Seasonal allergy [Unknown]
  - Fall [Unknown]
  - Gait inability [Recovering/Resolving]
  - COVID-19 [Unknown]
  - Gastrointestinal disorder [Unknown]
  - Ear infection [Unknown]
  - Gait disturbance [Unknown]
  - Depression [Unknown]
  - Urinary tract infection [Unknown]
  - Skin infection [Unknown]
  - Catheter site pruritus [Unknown]
  - Injury associated with device [Unknown]
  - Infected cyst [Unknown]
  - Upper respiratory tract infection [Unknown]
  - Sinusitis [Unknown]
  - Infusion site mass [Unknown]
  - Infusion site discharge [Unknown]
  - Conjunctivitis [Unknown]
  - Oxygen saturation decreased [Unknown]
  - Dyspepsia [Unknown]
  - Somnolence [Unknown]
  - Infusion site bruising [Unknown]
  - Burning sensation [Unknown]
  - Infusion site pruritus [Unknown]
  - Malaise [Recovering/Resolving]
  - Cough [Unknown]
  - Myalgia [Unknown]
  - Fatigue [Unknown]
  - Nausea [Unknown]

NARRATIVE: CASE EVENT DATE: 20180601
